FAERS Safety Report 21128315 (Version 2)
Quarter: 2022Q3

REPORT INFORMATION
  Report Type: Spontaneous
  Country: US (occurrence: US)
  Receive Date: 20220725
  Receipt Date: 20220815
  Transmission Date: 20221026
  Serious: Yes (Other)
  Sender: FDA-Public Use
  Company Number: US-BAYER-2022A098924

PATIENT
  Age: 35 Year
  Sex: Male

DRUGS (3)
  1. JIVI [Suspect]
     Active Substance: DAMOCTOCOG ALFA PEGOL
     Dosage: 5000 IU
  2. JIVI [Suspect]
     Active Substance: DAMOCTOCOG ALFA PEGOL
     Dosage: 1 DF FOR ANKLE BLEED
     Dates: start: 2022, end: 2022
  3. JIVI [Suspect]
     Active Substance: DAMOCTOCOG ALFA PEGOL
     Dosage: 1 DF FOR DENTAL EXTRACTION
     Dates: start: 20220715, end: 20220715

REACTIONS (3)
  - Haemarthrosis [None]
  - Tooth extraction [None]
  - Dental care [None]

NARRATIVE: CASE EVENT DATE: 20220627
